FAERS Safety Report 5825953-6 (Version None)
Quarter: 2008Q3

REPORT INFORMATION
  Report Type: 
  Country: None (occurrence: None)
  Receive Date: 20080729
  Receipt Date: 20080723
  Transmission Date: 20090109
  Serious: Yes (Hospitalization, Other)
  Sender: FDA-Public Use
  Company Number: PHEH2005US06399

PATIENT
  Sex: Female
  Weight: 57.596 kg

DRUGS (13)
  1. ESTRADERM [Suspect]
     Indication: HORMONE REPLACEMENT THERAPY
     Dosage: 0.05MG
     Route: 062
     Dates: start: 19901201, end: 19920101
  2. PREMPHASE 14/14 [Suspect]
     Indication: HORMONE REPLACEMENT THERAPY
     Dosage: 0.625MG
     Dates: start: 19900101, end: 19991001
  3. CYCRIN [Suspect]
     Indication: HORMONE REPLACEMENT THERAPY
     Dosage: 10MG UNK
     Dates: start: 19900101, end: 19920101
  4. ESTRATEST [Suspect]
     Indication: HORMONE REPLACEMENT THERAPY
     Dates: start: 19900101, end: 20020101
  5. PREMARIN [Suspect]
     Indication: HORMONE REPLACEMENT THERAPY
     Dosage: UNK, UNK
     Dates: start: 19930701, end: 19930101
  6. PROVERA [Suspect]
     Indication: HORMONE REPLACEMENT THERAPY
     Dosage: UNK, UNK
     Dates: start: 19911201, end: 19960101
  7. OGEN [Suspect]
     Indication: HORMONE REPLACEMENT THERAPY
     Dates: start: 19990101, end: 20020101
  8. ESTRACE [Suspect]
     Indication: HORMONE REPLACEMENT THERAPY
     Dosage: UNK, UNK
     Dates: start: 19930101, end: 19960101
  9. PREMPRO [Suspect]
     Indication: MENOPAUSE
     Dates: start: 20011201, end: 20020101
  10. PAXIL [Concomitant]
     Indication: DEPRESSION
     Dosage: 20MG BID
     Dates: start: 19940101
  11. PAXIL [Concomitant]
     Dosage: 30MG QHS
     Dates: start: 20060929
  12. XANAX [Concomitant]
     Indication: DEPRESSION
     Dosage: 0.5MG QD
     Dates: start: 19900101
  13. PAMELOR [Concomitant]
     Indication: DEPRESSION

REACTIONS (40)
  - ABDOMINAL PAIN [None]
  - ANXIETY [None]
  - BIOPSY [None]
  - BIOPSY LIVER [None]
  - BREAST CALCIFICATIONS [None]
  - BREAST CANCER IN SITU [None]
  - BREAST CANCER METASTATIC [None]
  - BREAST HYPERPLASIA [None]
  - BREAST MASS [None]
  - CALCULUS URETERIC [None]
  - DEPRESSION [None]
  - ENDOMETRIAL DISORDER [None]
  - FIBROCYSTIC BREAST DISEASE [None]
  - HEPATIC ENZYME INCREASED [None]
  - HEPATIC STEATOSIS [None]
  - HEPATITIS [None]
  - HYDRONEPHROSIS [None]
  - HYSTEROSCOPY [None]
  - IRRITABILITY [None]
  - LIVER DISORDER [None]
  - LIVER FUNCTION TEST ABNORMAL [None]
  - MALIGNANT BREAST LUMP REMOVAL [None]
  - MASTECTOMY [None]
  - MENOMETRORRHAGIA [None]
  - MENTAL DISORDER [None]
  - METAPLASIA [None]
  - NAUSEA [None]
  - NEPHROLITHIASIS [None]
  - OEDEMA PERIPHERAL [None]
  - OESTROGEN RECEPTOR ASSAY POSITIVE [None]
  - OSTEOPENIA [None]
  - PAIN IN EXTREMITY [None]
  - PROGESTERONE RECEPTOR ASSAY POSITIVE [None]
  - RADIOTHERAPY [None]
  - ROAD TRAFFIC ACCIDENT [None]
  - SCAN LYMPH NODES [None]
  - UTERINE DILATION AND CURETTAGE [None]
  - UTERINE LEIOMYOMA [None]
  - VAGINAL HAEMORRHAGE [None]
  - VOMITING [None]
